FAERS Safety Report 14239831 (Version 1)
Quarter: 2017Q4

REPORT INFORMATION
  Report Type: Spontaneous
  Country: CO (occurrence: CO)
  Receive Date: 20171130
  Receipt Date: 20171130
  Transmission Date: 20180321
  Serious: Yes (Hospitalization, Other)
  Sender: FDA-Public Use
  Company Number: CO-PFIZER INC-2017501018

PATIENT
  Age: 21 Year
  Sex: Male

DRUGS (7)
  1. POSACONAZOLE [Suspect]
     Active Substance: POSACONAZOLE
     Dosage: UNK
     Dates: start: 2012, end: 2013
  2. AMPHOTERICIN B. [Concomitant]
     Active Substance: AMPHOTERICIN B
     Dosage: UNK, CYCLIC
     Dates: start: 2013, end: 2015
  3. KETOCONAZOLE. [Suspect]
     Active Substance: KETOCONAZOLE
     Indication: CANDIDA INFECTION
     Dosage: UNK
     Dates: start: 2002, end: 2006
  4. FLUCONAZOLE. [Suspect]
     Active Substance: FLUCONAZOLE
     Indication: CANDIDA INFECTION
     Dosage: 200 MG, WEEKLY
     Dates: start: 1990, end: 2000
  5. VORICONAZOLE. [Suspect]
     Active Substance: VORICONAZOLE
     Indication: CANDIDA INFECTION
     Dosage: UNK
     Dates: start: 2002, end: 2006
  6. TRIMETOPRIM + SULFAMETOXAZOL [Concomitant]
     Active Substance: SULFAMETHOXAZOLE\TRIMETHOPRIM
     Dosage: UNK
     Dates: start: 2004, end: 201708
  7. CASPOFUNGIN [Concomitant]
     Active Substance: CASPOFUNGIN
     Dosage: UNK, CYCLIC
     Dates: start: 2013, end: 201708

REACTIONS (7)
  - Acne [Not Recovered/Not Resolved]
  - Molluscum contagiosum [Recovered/Resolved]
  - Systemic candida [Not Recovered/Not Resolved]
  - Pathogen resistance [Not Recovered/Not Resolved]
  - Furuncle [Not Recovered/Not Resolved]
  - Bronchiectasis [Not Recovered/Not Resolved]
  - Disease recurrence [Unknown]

NARRATIVE: CASE EVENT DATE: 1990
